FAERS Safety Report 9193764 (Version 1)
Quarter: 2013Q1

REPORT INFORMATION
  Report Type: Spontaneous
  Country: AR (occurrence: AR)
  Receive Date: 20130327
  Receipt Date: 20130327
  Transmission Date: 20140127
  Serious: Yes (Other)
  Sender: FDA-Public Use
  Company Number: PHHY2012AR106911

PATIENT
  Sex: Male

DRUGS (2)
  1. EXFORGE [Suspect]
     Indication: HYPERTENSION
     Dosage: 1 DF (160/10 MG)
     Route: 048
  2. EXFORGE [Suspect]
     Dosage: 1 DF (320/10 MG) DAILY
     Route: 048

REACTIONS (2)
  - Hernial eventration [Recovering/Resolving]
  - Colon cancer [Recovering/Resolving]
